FAERS Safety Report 24005009 (Version 1)
Quarter: 2024Q2

REPORT INFORMATION
  Report Type: Spontaneous
  Country: GB (occurrence: GB)
  Receive Date: 20240624
  Receipt Date: 20240624
  Transmission Date: 20240716
  Serious: Yes (Disabling, Other)
  Sender: FDA-Public Use
  Company Number: GB-MHRA-TPP59545639C19421089YC1718619161107

PATIENT
  Age: 39 Year
  Sex: Male
  Weight: 82 kg

DRUGS (8)
  1. IBUPROFEN [Suspect]
     Active Substance: IBUPROFEN
     Indication: Ill-defined disorder
     Route: 065
     Dates: start: 20240615
  2. ZOPICLONE [Concomitant]
     Active Substance: ZOPICLONE
     Indication: Ill-defined disorder
     Dosage: ONE TO BE TAKEN AT NIGHT WHEN REQUIRED.AS DIREC...
     Dates: start: 20240524, end: 20240525
  3. AMOXICILLIN\CLAVULANATE POTASSIUM [Concomitant]
     Active Substance: AMOXICILLIN\CLAVULANATE POTASSIUM
     Indication: Ill-defined disorder
     Dosage: 1 TABLET
     Dates: start: 20240615, end: 20240617
  4. COCODAMOL [Concomitant]
     Active Substance: ACETAMINOPHEN\CODEINE PHOSPHATE
     Indication: Ill-defined disorder
     Dosage: 1-2 TABLET
     Dates: start: 20240615
  5. QUETIAPINE [Concomitant]
     Active Substance: QUETIAPINE
     Indication: Ill-defined disorder
     Dosage: 1 TABLET
     Dates: start: 20240615
  6. ACETAMINOPHEN [Concomitant]
     Active Substance: ACETAMINOPHEN
     Indication: Ill-defined disorder
     Dosage: 1-2 TABLET
     Dates: start: 20240616, end: 20240616
  7. SERTRALINE [Concomitant]
     Active Substance: SERTRALINE HYDROCHLORIDE
     Indication: Ill-defined disorder
     Dosage: 2 TABLET
     Dates: start: 20240616
  8. QUETIAPINE FUMARATE [Concomitant]
     Active Substance: QUETIAPINE FUMARATE
     Indication: Ill-defined disorder
     Dosage: TAKE ONE TABLET IN THE EVENING
     Dates: start: 20240510, end: 20240511

REACTIONS (1)
  - Lip swelling [Recovered/Resolved]

NARRATIVE: CASE EVENT DATE: 20240615
